FAERS Safety Report 11444800 (Version 1)
Quarter: 2015Q3

REPORT INFORMATION
  Report Type: Spontaneous
  Country: US (occurrence: None)
  Receive Date: 20150831
  Receipt Date: 20150831
  Transmission Date: 20151125
  Serious: Yes (Other)
  Sender: FDA-Public Use
  Company Number: None

PATIENT
  Age: 28 Year
  Sex: Female
  Weight: 95.26 kg

DRUGS (1)
  1. CEFTIN [Suspect]
     Active Substance: CEFUROXIME AXETIL
     Indication: ACNE
     Route: 048
     Dates: start: 20150722, end: 20150822

REACTIONS (2)
  - Lip disorder [None]
  - Gingival hyperpigmentation [None]

NARRATIVE: CASE EVENT DATE: 20150730
